FAERS Safety Report 8789290 (Version 1)
Quarter: 2012Q4

REPORT INFORMATION
  Report Type: Spontaneous
  Country: GB (occurrence: None)
  Receive Date: 20120905
  Receipt Date: 20120905
  Transmission Date: 20130627
  Serious: Yes (Disabling)
  Sender: FDA-Public Use
  Company Number: GB-GDP-12414890

PATIENT
  Age: 85 Year
  Sex: Male
  Weight: 84.8 kg

DRUGS (6)
  1. METRONIDAZOLE (METRONIDAZOLE) [Suspect]
     Indication: PRODUCT USED FOR UNKNOWN INDICATION
     Dates: start: 20120725, end: 20120801
  2. FUROSEMIDE [Concomitant]
  3. SPIRONOLACTONE [Suspect]
  4. WARFARIN SODIUM [Suspect]
  5. RAMIPRIL [Concomitant]
  6. MEDICATED DRESSINGS [Concomitant]

REACTIONS (3)
  - Pruritus generalised [None]
  - Skin swelling [None]
  - Atrial fibrillation [None]
